FAERS Safety Report 7730654-3 (Version None)
Quarter: 2011Q3

REPORT INFORMATION
  Report Type: 
  Country: None (occurrence: None)
  Receive Date: 20110906
  Receipt Date: 20110824
  Transmission Date: 20111222
  Serious: Yes (Hospitalization)
  Sender: FDA-Public Use
  Company Number: US-GLAXOSMITHKLINE-A0747163A

PATIENT
  Age: 72 Year
  Sex: Female
  Weight: 72.7 kg

DRUGS (4)
  1. AVANDARYL [Suspect]
     Indication: DIABETES MELLITUS
     Route: 048
  2. AVANDIA [Suspect]
     Indication: TYPE 2 DIABETES MELLITUS
     Route: 048
     Dates: start: 20010101, end: 20080501
  3. AVANDAMET [Suspect]
     Indication: DIABETES MELLITUS
     Route: 048
  4. GLUCOVANCE [Concomitant]

REACTIONS (3)
  - MYOCARDIAL INFARCTION [None]
  - FLUID RETENTION [None]
  - SWELLING [None]
